FAERS Safety Report 9852239 (Version 1)
Quarter: 2013Q4

REPORT INFORMATION
  Report Type: Spontaneous
  Country: US (occurrence: None)
  Receive Date: 20131127
  Receipt Date: 20131127
  Transmission Date: 20140711
  Serious: No
  Sender: FDA-Public Use
  Company Number: 224403LEO

PATIENT
  Sex: Female

DRUGS (1)
  1. PICATO [Suspect]
     Indication: ACTINIC KERATOSIS
     Dosage: (1 IN 1 D), TOPICAL
     Route: 061
     Dates: start: 20131022

REACTIONS (6)
  - Application site erythema [None]
  - Application site pain [None]
  - Application site pruritus [None]
  - Application site pain [None]
  - Application site irritation [None]
  - Local swelling [None]
